FAERS Safety Report 11266409 (Version 4)
Quarter: 2020Q3

REPORT INFORMATION
  Report Type: Spontaneous
  Country: US (occurrence: US)
  Receive Date: 20150713
  Receipt Date: 20200813
  Transmission Date: 20201102
  Serious: Yes (Other)
  Sender: FDA-Public Use
  Company Number: US-PFIZER INC-2015229589

PATIENT
  Age: 70 Year
  Sex: Female

DRUGS (20)
  1. PREDNISONE. [Concomitant]
     Active Substance: PREDNISONE
     Dosage: UNK
  2. TRAMADOL HCL [Concomitant]
     Active Substance: TRAMADOL HYDROCHLORIDE
     Dosage: UNK
  3. PROAIR HFA [Concomitant]
     Active Substance: ALBUTEROL SULFATE
     Dosage: UNK
  4. BUPROPION HCL ER [Concomitant]
     Active Substance: BUPROPION HYDROCHLORIDE
     Dosage: UNK
  5. XELJANZ [Suspect]
     Active Substance: TOFACITINIB CITRATE
     Indication: RHEUMATOID ARTHRITIS
     Dosage: 5 MG, 1X/DAY
     Route: 048
     Dates: start: 201505
  6. CYCLOBENZAPRINE HCL [Concomitant]
     Active Substance: CYCLOBENZAPRINE HYDROCHLORIDE
     Dosage: UNK
  7. SINGULAIR [Concomitant]
     Active Substance: MONTELUKAST SODIUM
     Dosage: UNK
  8. XELJANZ [Suspect]
     Active Substance: TOFACITINIB CITRATE
     Dosage: UNK, DAILY (1 TO 2 TABLETS DAILY)
     Route: 048
     Dates: start: 20150506
  9. METHOTREXATE. [Concomitant]
     Active Substance: METHOTREXATE
     Dosage: UNK
  10. GLUCOSAMINE CHONDROITIN [Concomitant]
     Active Substance: CHONDROITIN SULFATE (BOVINE)\GLUCOSAMINE HYDROCHLORIDE
     Dosage: UNK
  11. PREVACID [Concomitant]
     Active Substance: LANSOPRAZOLE
     Dosage: UNK
  12. ADVAIR HFA [Concomitant]
     Active Substance: FLUTICASONE PROPIONATE\SALMETEROL XINAFOATE
     Dosage: UNK
  13. SUCRALFATE. [Concomitant]
     Active Substance: SUCRALFATE
     Dosage: UNK
  14. ZITHROMAX [Concomitant]
     Active Substance: AZITHROMYCIN DIHYDRATE
     Dosage: UNK
  15. CITRACAL + D [Concomitant]
     Active Substance: CALCIUM CITRATE\VITAMIN D
     Dosage: UNK
  16. TUSSIN DM [Concomitant]
     Active Substance: DEXTROMETHORPHAN HYDROBROMIDE\GUAIFENESIN
     Dosage: UNK
  17. B COMPLEX PLUS C [Concomitant]
     Dosage: UNK
  18. TYLENOL EXTRA STRENGTH [Concomitant]
     Active Substance: ACETAMINOPHEN
     Dosage: UNK
  19. FOLIC ACID. [Concomitant]
     Active Substance: FOLIC ACID
     Dosage: UNK
  20. TRIAMTERENE AND HYDROCHLOROTHIAZID [Concomitant]
     Active Substance: HYDROCHLOROTHIAZIDE\TRIAMTERENE
     Dosage: UNK

REACTIONS (10)
  - Cataract [Unknown]
  - Fatigue [Not Recovered/Not Resolved]
  - Diarrhoea [Unknown]
  - Headache [Not Recovered/Not Resolved]
  - Cholelithiasis [Unknown]
  - Bursitis [Unknown]
  - Back disorder [Unknown]
  - Off label use [Unknown]
  - Diverticulum [Unknown]
  - Irritable bowel syndrome [Unknown]

NARRATIVE: CASE EVENT DATE: 20150506
